FAERS Safety Report 12740104 (Version 1)
Quarter: 2016Q3

REPORT INFORMATION
  Report Type: Report from Study
  Country: FR (occurrence: FR)
  Receive Date: 20160913
  Receipt Date: 20160913
  Transmission Date: 20161109
  Serious: Yes (Death)
  Sender: FDA-Public Use
  Company Number: PHHY2015FR134881

PATIENT
  Age: 62 Year
  Sex: Male

DRUGS (14)
  1. PROGRAF [Suspect]
     Active Substance: TACROLIMUS\TACROLIMUS ANHYDROUS
     Indication: LIVER TRANSPLANT
     Dosage: 10 MG, QD
     Route: 065
     Dates: start: 20140125, end: 20140831
  2. IMUREL [Suspect]
     Active Substance: AZATHIOPRINE SODIUM
     Indication: IMMUNOSUPPRESSANT DRUG THERAPY
  3. CORTANCYL [Suspect]
     Active Substance: PREDNISONE
     Indication: LIVER TRANSPLANT
     Dosage: 5 MG, QD
     Route: 065
     Dates: start: 20140125, end: 20150428
  4. VOLTAREN [Suspect]
     Active Substance: DICLOFENAC SODIUM
     Indication: PRODUCT USED FOR UNKNOWN INDICATION
     Route: 065
  5. MYFORTIC [Suspect]
     Active Substance: MYCOPHENOLATE SODIUM
     Indication: IMMUNOSUPPRESSANT DRUG THERAPY
     Dosage: 720 MG, QD
     Route: 065
     Dates: start: 20140905, end: 20150521
  6. IMUREL [Suspect]
     Active Substance: AZATHIOPRINE SODIUM
     Indication: LIVER TRANSPLANT
     Dosage: 100 MG, QD
     Route: 065
     Dates: start: 20150718, end: 20150906
  7. MERCAPTOPURINE. [Suspect]
     Active Substance: MERCAPTOPURINE
     Indication: IMMUNOSUPPRESSANT DRUG THERAPY
  8. NO TREATMENT RECEIVED [Suspect]
     Active Substance: UNSPECIFIED INGREDIENT
     Indication: PRODUCT USED FOR UNKNOWN INDICATION
     Route: 065
  9. CORTANCYL [Suspect]
     Active Substance: PREDNISONE
     Indication: IMMUNOSUPPRESSANT DRUG THERAPY
     Dosage: 2.5 MG, QD
     Route: 065
     Dates: start: 20150429
  10. MYFORTIC [Suspect]
     Active Substance: MYCOPHENOLATE SODIUM
     Indication: LIVER TRANSPLANT
     Dosage: 720 MG, QD
     Route: 065
     Dates: start: 20140111, end: 20140811
  11. MYFORTIC [Suspect]
     Active Substance: MYCOPHENOLATE SODIUM
     Dosage: 360 MG, QD
     Route: 065
     Dates: start: 20150522, end: 20150709
  12. PROGRAF [Suspect]
     Active Substance: TACROLIMUS\TACROLIMUS ANHYDROUS
     Indication: IMMUNOSUPPRESSANT DRUG THERAPY
     Dosage: 8 MG, QD
     Route: 065
     Dates: start: 20140901, end: 20140902
  13. PROGRAF [Suspect]
     Active Substance: TACROLIMUS\TACROLIMUS ANHYDROUS
     Dosage: 3 MG, BID
     Route: 048
     Dates: start: 20140903
  14. MERCAPTOPURINE. [Suspect]
     Active Substance: MERCAPTOPURINE
     Indication: LIVER TRANSPLANT
     Dosage: 50 MG, QD
     Route: 065
     Dates: start: 20150910

REACTIONS (3)
  - Renal impairment [Fatal]
  - Chronic kidney disease [Fatal]
  - Diarrhoea [Fatal]

NARRATIVE: CASE EVENT DATE: 20150123
